FAERS Safety Report 13400039 (Version 1)
Quarter: 2017Q2

REPORT INFORMATION
  Report Type: Report from Study
  Country: US (occurrence: US)
  Receive Date: 20170404
  Receipt Date: 20170404
  Transmission Date: 20170830
  Serious: No
  Sender: FDA-Public Use
  Company Number: US-009507513-1703USA003806

PATIENT
  Sex: Male

DRUGS (1)
  1. KEYTRUDA [Suspect]
     Active Substance: PEMBROLIZUMAB
     Indication: SQUAMOUS CELL CARCINOMA
     Dosage: UNK, ONCE EVERY 3 WEEKS. INTRAVENOUS INFUSION
     Route: 041

REACTIONS (2)
  - Product use in unapproved indication [Unknown]
  - Movement disorder [Unknown]
